FAERS Safety Report 4355921-5 (Version None)
Quarter: 2004Q2

REPORT INFORMATION
  Report Type: 
  Country: None (occurrence: None)
  Receive Date: 20040503
  Receipt Date: 20040420
  Transmission Date: 20050107
  Serious: Yes (Death)
  Sender: FDA-Public Use
  Company Number: 200410066BBE

PATIENT
  Age: 75 Year
  Sex: Female

DRUGS (3)
  1. PLASBUMIN-25 [Suspect]
     Indication: HYPOALBUMINAEMIA
     Dosage: 25 G, BID, INTRAVENOUS
     Route: 042
     Dates: start: 20040310, end: 20040317
  2. FORTUM [Concomitant]
  3. FORMICIN [Concomitant]

REACTIONS (4)
  - CARDIAC FAILURE [None]
  - CHILLS [None]
  - SEPSIS [None]
  - SHOCK [None]
